FAERS Safety Report 25008414 (Version 1)
Quarter: 2025Q1

REPORT INFORMATION
  Report Type: Spontaneous
  Country: PL (occurrence: PL)
  Receive Date: 20250225
  Receipt Date: 20250225
  Transmission Date: 20250409
  Serious: Yes (Hospitalization)
  Sender: JOHNSON AND JOHNSON
  Company Number: PL-KRKA-PL2024K15031LIT

PATIENT
  Age: 34 Year
  Sex: Female

DRUGS (17)
  1. RISPERIDONE [Suspect]
     Active Substance: RISPERIDONE
     Indication: Anxiety disorder
  2. RISPERIDONE [Suspect]
     Active Substance: RISPERIDONE
     Indication: Depression
  3. RISPERIDONE [Suspect]
     Active Substance: RISPERIDONE
  4. RISPERIDONE [Suspect]
     Active Substance: RISPERIDONE
  5. RISPERIDONE [Suspect]
     Active Substance: RISPERIDONE
  6. RISPERIDONE [Suspect]
     Active Substance: RISPERIDONE
  7. DIAZEPAM [Suspect]
     Active Substance: DIAZEPAM
     Indication: Epilepsy
     Route: 040
  8. LEVETIRACETAM [Suspect]
     Active Substance: LEVETIRACETAM
     Indication: Epilepsy
     Route: 041
  9. LEVETIRACETAM [Suspect]
     Active Substance: LEVETIRACETAM
     Dosage: 1500 MG, 2X PER DAY
  10. LACOSAMIDE [Suspect]
     Active Substance: LACOSAMIDE
     Indication: Epilepsy
     Dosage: 200 MG, 2X PER DAY
  11. LAMOTRIGINE [Suspect]
     Active Substance: LAMOTRIGINE
     Indication: Epilepsy
     Dosage: 100 MG, 2X PER DAY
  12. LAMOTRIGINE [Suspect]
     Active Substance: LAMOTRIGINE
     Dosage: 250 MG, 2X PER DAY
  13. BUSPIRONE [Suspect]
     Active Substance: BUSPIRONE HYDROCHLORIDE
     Indication: Anxiety disorder
  14. BUSPIRONE [Suspect]
     Active Substance: BUSPIRONE HYDROCHLORIDE
     Indication: Depression
  15. TRAZODONE [Suspect]
     Active Substance: TRAZODONE HYDROCHLORIDE
     Indication: Anxiety disorder
  16. TRAZODONE [Suspect]
     Active Substance: TRAZODONE HYDROCHLORIDE
     Indication: Depression
  17. LACOSAMIDE [Suspect]
     Active Substance: LACOSAMIDE
     Indication: Epilepsy
     Dosage: 200 MG, 2X PER DAY

REACTIONS (2)
  - Exposure during pregnancy [Unknown]
  - Therapy partial responder [Unknown]
